FAERS Safety Report 21336577 (Version 1)
Quarter: 2022Q3

REPORT INFORMATION
  Report Type: Spontaneous
  Country: GB (occurrence: GB)
  Receive Date: 20220915
  Receipt Date: 20220915
  Transmission Date: 20221027
  Serious: Yes (Other)
  Sender: FDA-Public Use
  Company Number: None

PATIENT
  Age: 76 Year
  Sex: Female
  Weight: 55 kg

DRUGS (7)
  1. FUROSEMIDE [Suspect]
     Active Substance: FUROSEMIDE
     Indication: Product used for unknown indication
  2. CALCIUM\VITAMIN D [Concomitant]
     Active Substance: CALCIUM\VITAMIN D
     Indication: Osteopenia
  3. ESTRADIOL [Concomitant]
     Active Substance: ESTRADIOL
     Indication: Bladder prolapse
  4. EVENING PRIMROSE OIL\HERBALS [Concomitant]
     Active Substance: EVENING PRIMROSE OIL\HERBALS
     Indication: Hot flush
  5. IBUPROFEN [Concomitant]
     Active Substance: IBUPROFEN
     Indication: Arthritis
  6. ACETAMINOPHEN [Concomitant]
     Active Substance: ACETAMINOPHEN
     Indication: Arthritis
  7. SOTALOL [Concomitant]
     Active Substance: SOTALOL
     Indication: Supraventricular tachycardia
     Dates: start: 20120612

REACTIONS (2)
  - Hypoacusis [Recovered/Resolved]
  - Ear discomfort [Unknown]

NARRATIVE: CASE EVENT DATE: 20220801
